FAERS Safety Report 17005432 (Version 2)
Quarter: 2020Q1

REPORT INFORMATION
  Report Type: Spontaneous
  Country: ES (occurrence: ES)
  Receive Date: 20191107
  Receipt Date: 20200110
  Transmission Date: 20200409
  Serious: Yes (Other)
  Sender: FDA-Public Use
  Company Number: ES-BAUSCH-BL-2019-059759

PATIENT
  Age: 61 Year
  Sex: Female

DRUGS (4)
  1. LORAMET [Concomitant]
     Active Substance: LORMETAZEPAM
     Indication: PARANOIA
  2. ZYPREXA [Concomitant]
     Active Substance: OLANZAPINE
     Indication: PARANOIA
  3. DOBUPAL [Suspect]
     Active Substance: VENLAFAXINE HYDROCHLORIDE
     Route: 065
  4. DOBUPAL [Suspect]
     Active Substance: VENLAFAXINE HYDROCHLORIDE
     Indication: DEPRESSION
     Route: 065

REACTIONS (1)
  - Hypersensitivity pneumonitis [Recovered/Resolved]
